FAERS Safety Report 8357575-X (Version None)
Quarter: 2012Q2

REPORT INFORMATION
  Report Type: 
  Country: None (occurrence: None)
  Receive Date: 20120514
  Receipt Date: 20120430
  Transmission Date: 20120825
  Serious: Yes (Hospitalization, Other)
  Sender: FDA-Public Use
  Company Number: US-SHIRE-ALL1-2012-02241

PATIENT
  Sex: Female
  Weight: 49.887 kg

DRUGS (8)
  1. AMPHETAMINE AND DEXTROAMPHETAMINE SALTS [Suspect]
     Indication: OFF LABEL USE
  2. ADDERALL 5 [Suspect]
     Indication: ATTENTION DEFICIT/HYPERACTIVITY DISORDER
     Dosage: UNK UNK, UNKNOWN
     Route: 048
  3. ADDERALL 5 [Suspect]
  4. ADDERALL XR 10 [Suspect]
     Indication: OFF LABEL USE
  5. AMPHETAMINE AND DEXTROAMPHETAMINE SALTS [Suspect]
     Dosage: 20 MG, 3X/DAY:TID FOR A TOTAL OF 60 MG. DAILY
     Route: 048
     Dates: start: 20100101
  6. ADDERALL XR 10 [Suspect]
     Indication: ATTENTION DEFICIT/HYPERACTIVITY DISORDER
     Dosage: UNK, UNKNOWN
     Route: 048
  7. ADDERALL XR 10 [Suspect]
     Dosage: 20 MG, 3X/DAY:TID
     Route: 048
     Dates: start: 20100101
  8. AMPHETAMINE AND DEXTROAMPHETAMINE SALTS [Suspect]
     Indication: ATTENTION DEFICIT/HYPERACTIVITY DISORDER
     Dosage: UNK, UNKNOWN
     Route: 048

REACTIONS (9)
  - SUBSTANCE ABUSE [None]
  - DRUG DIVERSION [None]
  - INTENTIONAL OVERDOSE [None]
  - INAPPROPRIATE SCHEDULE OF DRUG ADMINISTRATION [None]
  - SCHIZOPHRENIA, PARANOID TYPE [None]
  - LOSS OF CONSCIOUSNESS [None]
  - CRIME [None]
  - INSOMNIA [None]
  - HYPERHIDROSIS [None]
